FAERS Safety Report 8795270 (Version 1)
Quarter: 2012Q4

REPORT INFORMATION
  Report Type: 
  Country: ES (occurrence: ES)
  Receive Date: 20120917
  Receipt Date: 20120917
  Transmission Date: 20130627
  Serious: Yes (Other)
  Sender: FDA-Public Use
  Company Number: PHHY2012ES079774

PATIENT
  Age: 68 Year
  Sex: Female

DRUGS (1)
  1. TASIGNA [Suspect]
     Dosage: 800 mg, UNK

REACTIONS (1)
  - Cardiac tamponade [Recovered/Resolved]
